FAERS Safety Report 15504339 (Version 3)
Quarter: 2019Q3

REPORT INFORMATION
  Report Type: Report from Study
  Country: US (occurrence: US)
  Receive Date: 20181016
  Receipt Date: 20190708
  Transmission Date: 20191004
  Serious: Yes (Other)
  Sender: FDA-Public Use
  Company Number: PHEH2018US041945

PATIENT
  Age: 62 Year
  Sex: Male

DRUGS (1)
  1. KYMRIAH [Suspect]
     Active Substance: TISAGENLECLEUCEL
     Indication: DIFFUSE LARGE B-CELL LYMPHOMA
     Dosage: ONE SINGLE DOSE
     Route: 042
     Dates: start: 201610, end: 201610

REACTIONS (3)
  - Immunodeficiency [Unknown]
  - Cytokine release syndrome [Unknown]
  - Hypoacusis [Unknown]

NARRATIVE: CASE EVENT DATE: 201610
